FAERS Safety Report 4339811-X (Version None)
Quarter: 2004Q2

REPORT INFORMATION
  Report Type: 
  Country: None (occurrence: None)
  Receive Date: 20040414
  Receipt Date: 20040414
  Transmission Date: 20050107
  Serious: Yes (Death)
  Sender: FDA-Public Use
  Company Number: None

PATIENT
  Age: 74 Year
  Sex: Male

DRUGS (1)
  1. CYPHER CORONARY ARTERY STENT- DRUG ELUTING [Suspect]

REACTIONS (2)
  - CORONARY ARTERY THROMBOSIS [None]
  - POST PROCEDURAL COMPLICATION [None]
